FAERS Safety Report 19890297 (Version 1)
Quarter: 2021Q3

REPORT INFORMATION
  Report Type: Spontaneous
  Country: CA (occurrence: CA)
  Receive Date: 20210927
  Receipt Date: 20210927
  Transmission Date: 20211014
  Serious: Yes (Life-Threatening, Other)
  Sender: FDA-Public Use
  Company Number: CA-PFIZER INC-2020450740

PATIENT
  Age: 64 Year
  Sex: Female

DRUGS (4)
  1. ORENCIA [Concomitant]
     Active Substance: ABATACEPT
     Dosage: 500 MG EVERY 3 WEEKS
     Route: 065
     Dates: start: 201906
  2. XELJANZ XR [Suspect]
     Active Substance: TOFACITINIB CITRATE
     Indication: RHEUMATOID ARTHRITIS
     Dosage: 11 MG, DAILY
     Route: 048
     Dates: start: 20201027
  3. METHOTREXATE. [Concomitant]
     Active Substance: METHOTREXATE
     Indication: RHEUMATOID ARTHRITIS
     Dosage: UNK
     Route: 065
     Dates: start: 2003, end: 2005
  4. CELEBREX [Concomitant]
     Active Substance: CELECOXIB
     Dosage: 1 DF (DOSAGE INFORMATION IS UNKNOWN, DISCONTINUED)

REACTIONS (10)
  - Dysuria [Not Recovered/Not Resolved]
  - Suicidal ideation [Unknown]
  - Ear pain [Not Recovered/Not Resolved]
  - Migraine [Unknown]
  - Ear infection [Not Recovered/Not Resolved]
  - Tendonitis [Not Recovered/Not Resolved]
  - Headache [Recovered/Resolved]
  - Urinary tract infection [Unknown]
  - Rheumatoid arthritis [Unknown]
  - Throat irritation [Not Recovered/Not Resolved]

NARRATIVE: CASE EVENT DATE: 2021
